FAERS Safety Report 8226706-4 (Version None)
Quarter: 2012Q1

REPORT INFORMATION
  Report Type: 
  Country: None (occurrence: None)
  Receive Date: 20120322
  Receipt Date: 20120316
  Transmission Date: 20120608
  Serious: Yes (Hospitalization, Other)
  Sender: FDA-Public Use
  Company Number: US-BAYER-2011-114974

PATIENT
  Age: 60 Year
  Sex: Male

DRUGS (6)
  1. NEXAVAR [Suspect]
     Dosage: 400 MG, BID
     Dates: start: 20111222
  2. NEXAVAR [Suspect]
     Dosage: 400 MG, BID (2 IN AM AND 2 IN PM)
     Route: 048
     Dates: start: 20111210, end: 20111211
  3. NEXAVAR [Suspect]
     Indication: HEPATIC NEOPLASM MALIGNANT
     Dosage: 200 MG, BID (1 IN AM AN 1 IN PM)
     Route: 048
     Dates: start: 20111101, end: 20111117
  4. NEXAVAR [Suspect]
     Dosage: UNK
     Route: 048
     Dates: start: 20111121, end: 20111201
  5. NEXAVAR [Suspect]
     Dosage: 200 MG, BID (1 IN AM AND 1 IN PM)
     Route: 048
     Dates: start: 20111212, end: 20111201
  6. ANTIBIOTICS [Concomitant]

REACTIONS (11)
  - CONFUSIONAL STATE [None]
  - INFECTION [None]
  - SKIN HYPERTROPHY [None]
  - FATIGUE [None]
  - FLUID RETENTION [None]
  - PYREXIA [None]
  - AMMONIA INCREASED [None]
  - DIARRHOEA [None]
  - PRURITUS [None]
  - ASTHENIA [None]
  - NEOPLASM PROGRESSION [None]
